FAERS Safety Report 24338891 (Version 5)
Quarter: 2025Q1

REPORT INFORMATION
  Report Type: Spontaneous
  Country: US (occurrence: US)
  Receive Date: 20240919
  Receipt Date: 20250106
  Transmission Date: 20250408
  Serious: No
  Sender: PFIZER
  Company Number: US-PFIZER INC-202400256538

PATIENT
  Age: 66 Year
  Sex: Female

DRUGS (4)
  1. GENOTROPIN [Suspect]
     Active Substance: SOMATROPIN
     Indication: Hypopituitarism
     Dosage: 0.5 MG, DAILY
  2. GENOTROPIN [Suspect]
     Active Substance: SOMATROPIN
     Dosage: 1.6 MG, ALTERNATE DAY
  3. GENOTROPIN [Suspect]
     Active Substance: SOMATROPIN
     Dosage: 2.0 MG, ALTERNATE DAY
  4. GENOTROPIN [Suspect]
     Active Substance: SOMATROPIN
     Dosage: 5 MG/DAY 7 DAYS/WEEK

REACTIONS (7)
  - Device use error [Unknown]
  - Poor quality device used [Unknown]
  - Device malfunction [Unknown]
  - Device mechanical issue [Unknown]
  - Device physical property issue [Unknown]
  - Device leakage [Unknown]
  - Device delivery system issue [Unknown]
